FAERS Safety Report 13927422 (Version 7)
Quarter: 2019Q4

REPORT INFORMATION
  Report Type: Spontaneous
  Country: US (occurrence: US)
  Receive Date: 20170901
  Receipt Date: 20191128
  Transmission Date: 20200122
  Serious: Yes (Hospitalization, Other)
  Sender: FDA-Public Use
  Company Number: US-BIOGEN-2015BI000500

PATIENT
  Sex: Female
  Weight: 52.6 kg

DRUGS (6)
  1. TECFIDERA [Suspect]
     Active Substance: DIMETHYL FUMARATE
     Dosage: MAINTENANCE DOSE
     Route: 050
     Dates: start: 20131220, end: 201407
  2. VENOFER [Suspect]
     Active Substance: IRON SUCROSE
     Indication: PRODUCT USED FOR UNKNOWN INDICATION
     Route: 065
  3. TECFIDERA [Suspect]
     Active Substance: DIMETHYL FUMARATE
     Indication: MULTIPLE SCLEROSIS
     Dosage: STARTING DOSE
     Route: 050
     Dates: start: 20131213, end: 20131219
  4. TECFIDERA [Suspect]
     Active Substance: DIMETHYL FUMARATE
     Dosage: MAINTENANCE DOSE
     Route: 050
     Dates: start: 20131118, end: 20141001
  5. TECFIDERA [Suspect]
     Active Substance: DIMETHYL FUMARATE
     Route: 050
     Dates: end: 20141010
  6. TECFIDERA [Suspect]
     Active Substance: DIMETHYL FUMARATE
     Dosage: MAINNTENANCE DOSE
     Route: 050
     Dates: end: 20141001

REACTIONS (37)
  - Blood glucose decreased [Recovered/Resolved]
  - Back pain [Not Recovered/Not Resolved]
  - Depression [Not Recovered/Not Resolved]
  - Pneumonia bacterial [Recovered/Resolved]
  - Spinal stenosis [Not Recovered/Not Resolved]
  - Dysphagia [Not Recovered/Not Resolved]
  - Hypoaesthesia [Unknown]
  - Joint swelling [Recovered/Resolved]
  - Anxiety [Not Recovered/Not Resolved]
  - Post-traumatic stress disorder [Unknown]
  - Cerebrovascular accident [Recovered/Resolved]
  - Anaphylactic reaction [Recovered/Resolved]
  - Optic nerve disorder [Not Recovered/Not Resolved]
  - Bursitis [Not Recovered/Not Resolved]
  - Multiple sclerosis [Not Recovered/Not Resolved]
  - Iron deficiency [Unknown]
  - Pneumonia [Recovered/Resolved]
  - Arthritis [Not Recovered/Not Resolved]
  - Carpal tunnel syndrome [Not Recovered/Not Resolved]
  - Drug hypersensitivity [Unknown]
  - Multiple sclerosis [Unknown]
  - Psychotic disorder [Unknown]
  - Aspiration [Not Recovered/Not Resolved]
  - Tremor [Not Recovered/Not Resolved]
  - Dysarthria [Not Recovered/Not Resolved]
  - Gastrointestinal disorder [Not Recovered/Not Resolved]
  - Decreased immune responsiveness [Unknown]
  - Seizure [Unknown]
  - Mobility decreased [Not Recovered/Not Resolved]
  - Musculoskeletal disorder [Not Recovered/Not Resolved]
  - Multiple sclerosis [Unknown]
  - Influenza like illness [Recovered/Resolved]
  - Pain [Not Recovered/Not Resolved]
  - Hypotension [Recovered/Resolved]
  - Drug ineffective [Recovered/Resolved]
  - Malaise [Not Recovered/Not Resolved]
  - Oesophageal dilatation [Unknown]

NARRATIVE: CASE EVENT DATE: 2013
